FAERS Safety Report 7079252-8 (Version None)
Quarter: 2010Q4

REPORT INFORMATION
  Report Type: 
  Country: None (occurrence: None)
  Receive Date: 20101022
  Receipt Date: 20101012
  Transmission Date: 20110411
  Serious: Yes (Other)
  Sender: FDA-Public Use
  Company Number: 2010129450

PATIENT
  Age: 64 Year
  Sex: Male

DRUGS (1)
  1. FRAGMIN [Suspect]

REACTIONS (1)
  - PLATELET COUNT INCREASED [None]
